FAERS Safety Report 26165748 (Version 1)
Quarter: 2025Q4

REPORT INFORMATION
  Report Type: Spontaneous
  Country: CN (occurrence: CN)
  Receive Date: 20251216
  Receipt Date: 20251216
  Transmission Date: 20260117
  Serious: Yes (Other)
  Sender: ELI LILLY AND COMPANY
  Company Number: CN-ELI_LILLY_AND_COMPANY-CN202512014865

PATIENT
  Age: 71 Year
  Sex: Female

DRUGS (3)
  1. PEMETREXED [Suspect]
     Active Substance: PEMETREXED
     Indication: Neoplasm malignant
     Dosage: 0.7 G, OTHER ONCE EVERY 21 DAYS
     Route: 041
     Dates: start: 20251104, end: 20251104
  2. CARBOPLATIN [Suspect]
     Active Substance: CARBOPLATIN
     Indication: Neoplasm malignant
     Dosage: 400 MG, OTHER ONCE EVERY 21 DAYS
     Route: 041
     Dates: start: 20251104, end: 20251104
  3. TISLELIZUMAB [Concomitant]
     Active Substance: TISLELIZUMAB
     Indication: Neoplasm malignant
     Dosage: 200 MG, UNKNOWN ONCE EVERY 21 DAYS
     Route: 041
     Dates: start: 20251104, end: 20251104

REACTIONS (1)
  - Hepatocellular injury [Unknown]

NARRATIVE: CASE EVENT DATE: 20251109
